FAERS Safety Report 20737844 (Version 1)
Quarter: 2022Q2

REPORT INFORMATION
  Report Type: Spontaneous
  Country: US (occurrence: US)
  Receive Date: 20220422
  Receipt Date: 20220422
  Transmission Date: 20220721
  Serious: Yes (Hospitalization)
  Sender: FDA-Public Use
  Company Number: US-TOLMAR, INC.-22US034039

PATIENT
  Age: 9 Month
  Sex: Female

DRUGS (7)
  1. LEVETIRACETAM [Suspect]
     Active Substance: LEVETIRACETAM
     Indication: Seizure
     Dosage: 60 MILLIGRAM PER KILOGRAM
  2. DIAZEPAM [Suspect]
     Active Substance: DIAZEPAM
     Indication: Seizure
     Dosage: UNK
     Route: 054
  3. FOSPHENYTOIN [Suspect]
     Active Substance: FOSPHENYTOIN
     Indication: Seizure
     Dosage: 20 MILLIGRAM PER KILOGRAM
  4. LORAZEPAM [Suspect]
     Active Substance: LORAZEPAM
     Indication: Seizure
     Dosage: 0.1 MILLIGRAM PER KILOGRAM
     Route: 042
  5. LORAZEPAM [Suspect]
     Active Substance: LORAZEPAM
     Dosage: 0.1 MILLIGRAM PER KILOGRAM
     Route: 042
  6. LORAZEPAM [Suspect]
     Active Substance: LORAZEPAM
     Dosage: 0.1 MILLIGRAM PER KILOGRAM
     Route: 042
  7. VERSED [Suspect]
     Active Substance: MIDAZOLAM HYDROCHLORIDE
     Indication: Seizure
     Dosage: 0.2 MILLIGRAM PER KILOGRAM
     Route: 030

REACTIONS (1)
  - Status epilepticus [Recovered/Resolved]
